FAERS Safety Report 10458748 (Version 2)
Quarter: 2014Q4

REPORT INFORMATION
  Report Type: Spontaneous
  Country: GB (occurrence: None)
  Receive Date: 20140915
  Receipt Date: 20141210
  Transmission Date: 20150528
  Serious: Yes (Hospitalization, Other)
  Sender: FDA-Public Use
  Company Number: 2014MPI01111

PATIENT
  Age: 50 Year
  Sex: Female

DRUGS (1)
  1. ADCETRIS [Suspect]
     Active Substance: BRENTUXIMAB VEDOTIN
     Indication: HODGKIN^S DISEASE

REACTIONS (6)
  - Stem cell transplant [None]
  - Serum ferritin increased [None]
  - Disease recurrence [None]
  - Infection [None]
  - Cytopenia [None]
  - Blood product transfusion dependent [None]
